FAERS Safety Report 10907053 (Version 1)
Quarter: 2015Q1

REPORT INFORMATION
  Report Type: Spontaneous
  Country: US (occurrence: None)
  Receive Date: 20150309
  Receipt Date: 20150309
  Transmission Date: 20150721
  Serious: No
  Sender: FDA-Public Use
  Company Number: None

PATIENT
  Age: 55 Year
  Sex: Female
  Weight: 113.4 kg

DRUGS (2)
  1. MONTELUKAST [Suspect]
     Active Substance: MONTELUKAST SODIUM
     Indication: RHINITIS ALLERGIC
     Dosage: TOOK IT ONLY ONE TIME?1 PILL
     Route: 048
  2. MONTELUKAST [Suspect]
     Active Substance: MONTELUKAST SODIUM
     Indication: ASTHMA
     Dosage: TOOK IT ONLY ONE TIME?1 PILL
     Route: 048

REACTIONS (7)
  - Pyrexia [None]
  - Agitation [None]
  - Irritability [None]
  - Tremor [None]
  - Disturbance in attention [None]
  - Viral sinusitis [None]
  - Anger [None]

NARRATIVE: CASE EVENT DATE: 20150221
